FAERS Safety Report 9181707 (Version 1)
Quarter: 2013Q1

REPORT INFORMATION
  Report Type: Spontaneous
  Country: US (occurrence: US)
  Receive Date: 20130322
  Receipt Date: 20130322
  Transmission Date: 20140127
  Serious: Yes (Hospitalization)
  Sender: FDA-Public Use
  Company Number: US-BAYER-2013-034685

PATIENT
  Age: 39 Year
  Sex: Female
  Weight: 77.1 kg

DRUGS (10)
  1. YASMIN [Suspect]
  2. SOLUMEDROL [Concomitant]
  3. FLONASE [Concomitant]
  4. METHYLPREDNISOLONE [Concomitant]
  5. H-C TUSSIVE [Concomitant]
  6. METFORMIN [Concomitant]
  7. FLUTICASONE PROPIONATE [Concomitant]
     Dosage: 50 MCG
  8. PROPOXYPHENE HCL AND ACETAMINOPHEN [Concomitant]
  9. LEVAQUIN [Concomitant]
  10. AVELOX [Concomitant]

REACTIONS (2)
  - Pulmonary embolism [Recovered/Resolved]
  - Deep vein thrombosis [Recovering/Resolving]
